FAERS Safety Report 8558368 (Version 2)
Quarter: 2013Q2

REPORT INFORMATION
  Report Type: Spontaneous
  Country: US (occurrence: US)
  Receive Date: 20120511
  Receipt Date: 20130510
  Transmission Date: 20140414
  Serious: No
  Sender: FDA-Public Use
  Company Number: US-GLAXOSMITHKLINE-A0965266A

PATIENT
  Age: 38 Year
  Sex: Female
  Weight: 107 kg

DRUGS (4)
  1. TYKERB [Suspect]
     Indication: BRAIN NEOPLASM
     Dosage: 1250MG PER DAY
     Route: 048
     Dates: start: 201005
  2. TEMODAR [Suspect]
     Indication: BRAIN NEOPLASM
     Dosage: 360MG PER DAY
     Route: 048
     Dates: start: 201005
  3. XANAX [Concomitant]
     Dosage: .5MG AS REQUIRED
     Route: 048
  4. OMEPRAZOLE [Concomitant]
     Dosage: 20MG AS REQUIRED
     Route: 048

REACTIONS (2)
  - Rash erythematous [Unknown]
  - Pruritus [Unknown]
